FAERS Safety Report 7495223-1 (Version None)
Quarter: 2011Q2

REPORT INFORMATION
  Report Type: 
  Country: None (occurrence: None)
  Receive Date: 20110522
  Receipt Date: 20110509
  Transmission Date: 20111010
  Serious: Yes (Other)
  Sender: FDA-Public Use
  Company Number: US-ELI_LILLY_AND_COMPANY-US201102003715

PATIENT
  Sex: Female

DRUGS (2)
  1. FORTEO [Suspect]
     Dosage: 20 UG, QD
  2. FORTEO [Suspect]
     Indication: BONE DENSITY ABNORMAL
     Dosage: 20 UG, DAILY (1/D)
     Route: 065
     Dates: start: 20090604

REACTIONS (8)
  - HIP ARTHROPLASTY [None]
  - PELVIC PAIN [None]
  - BONE PAIN [None]
  - PAIN IN EXTREMITY [None]
  - INFLUENZA [None]
  - ARTHRALGIA [None]
  - FLUID RETENTION [None]
  - MUSCULOSKELETAL PAIN [None]
